FAERS Safety Report 4502503-8 (Version None)
Quarter: 2004Q4

REPORT INFORMATION
  Report Type: 
  Country: None (occurrence: None)
  Receive Date: 20041112
  Receipt Date: 20041102
  Transmission Date: 20050328
  Serious: Yes (Hospitalization)
  Sender: FDA-Public Use
  Company Number: HQWYE877618OCT04

PATIENT
  Age: 49 Year
  Sex: Female

DRUGS (3)
  1. HYPEN (ETODOLAC) [Suspect]
     Indication: LUMBAR HERNIA
     Dosage: 400 MG DAILY
     Route: 048
     Dates: start: 20040831, end: 20040903
  2. CHLORPHENESIN CARBAMATE BULK-EXPORT [Suspect]
     Indication: MUSCLE SPASMS
     Dosage: 250 MG DAILY
     Route: 048
     Dates: start: 20040831, end: 20040903
  3. REBAMIPIDE         (REBAMIPIDE ) [Suspect]
     Indication: PROPHYLAXIS AGAINST GASTROINTESTINAL ULCER
     Dosage: 200 MG DAILY
     Route: 048
     Dates: start: 20040831, end: 20040903

REACTIONS (4)
  - ANAEMIA [None]
  - DISCOMFORT [None]
  - FACE OEDEMA [None]
  - RASH GENERALISED [None]
